FAERS Safety Report 7382354-X (Version None)
Quarter: 2011Q1

REPORT INFORMATION
  Report Type: 
  Country: None (occurrence: None)
  Receive Date: 20110329
  Receipt Date: 20110228
  Transmission Date: 20110831
  Serious: Yes (Hospitalization, Other)
  Sender: FDA-Public Use
  Company Number: US-BAYER-201031835NA

PATIENT
  Sex: Female
  Weight: 97.052 kg

DRUGS (20)
  1. OXYCODONE HCL AND ACETAMINOPHEN [Concomitant]
     Dosage: 10 MG, PRN
     Route: 048
  2. KETOROLAC [Concomitant]
     Dosage: 10 MG, UNK
     Route: 048
  3. YASMIN [Suspect]
     Indication: PRODUCT USED FOR UNKNOWN INDICATION
     Dosage: UNK
     Dates: start: 20071101, end: 20091201
  4. FLUCONAZOLE [Concomitant]
     Dosage: 150 MG, UNK
  5. CARISOPRODOL [Concomitant]
     Dosage: 350 MG, UNK
     Route: 048
  6. DIAZEPAM [Concomitant]
     Dosage: 5 MG, UNK
     Route: 048
  7. XANAX [Concomitant]
     Dosage: 2 MG, UNK
     Route: 048
  8. DETROL [Concomitant]
     Dosage: UNK
  9. IBUPROFEN [Concomitant]
     Dosage: 800 MG, UNK
     Route: 048
  10. TOPAMAX [Concomitant]
     Dosage: 25 MG, QD
     Route: 048
  11. ALPRAZOLAM [Concomitant]
     Dosage: 2 MG, UNK
     Route: 048
  12. ESTRACE [Concomitant]
     Dosage: 0.01 %, UNK
     Route: 067
  13. FENTANYL [Concomitant]
     Dosage: 0.05 MG, UNK
  14. HYDROCODONE BITARTRATE AND ACETAMINOPHEN [Concomitant]
     Dosage: 325 MG, UNK
  15. OMEPRAZOLE [Concomitant]
     Dosage: 20 MG, UNK
  16. PREDNISONE [Concomitant]
     Dosage: 20 MG, UNK
     Route: 048
  17. AVELOX [Concomitant]
     Dosage: 400 MG, UNK
     Route: 048
  18. FENTANYL [Concomitant]
     Dosage: 0.1 MG, UNK
  19. LYRICA [Concomitant]
     Dosage: 200 MG, BID
     Route: 048
  20. TOPROL-XL [Concomitant]
     Dosage: 25 MG, QD
     Route: 048

REACTIONS (5)
  - DEEP VEIN THROMBOSIS [None]
  - DEPRESSION [None]
  - PULMONARY EMBOLISM [None]
  - CHOLECYSTECTOMY [None]
  - ANXIETY [None]
